FAERS Safety Report 6139500-5 (Version None)
Quarter: 2009Q2

REPORT INFORMATION
  Report Type: 
  Country: None (occurrence: None)
  Receive Date: 20090401
  Receipt Date: 20090326
  Transmission Date: 20091009
  Serious: Yes (Other)
  Sender: FDA-Public Use
  Company Number: CA-ASTRAZENECA-2009UW07732

PATIENT
  Age: 72 Year
  Sex: Female

DRUGS (1)
  1. CRESTOR [Suspect]
     Indication: BLOOD CHOLESTEROL
     Route: 048
     Dates: start: 20090201

REACTIONS (5)
  - FATIGUE [None]
  - PHARYNGEAL OEDEMA [None]
  - PRURITUS [None]
  - SENSORY LOSS [None]
  - SWELLING FACE [None]
